FAERS Safety Report 7878499-8 (Version None)
Quarter: 2011Q4

REPORT INFORMATION
  Report Type: 
  Country: None (occurrence: None)
  Receive Date: 20111028
  Receipt Date: 20111021
  Transmission Date: 20120403
  Serious: Yes (Other)
  Sender: FDA-Public Use
  Company Number: OMPQ-NO-1106S-0621

PATIENT
  Age: 32 Year
  Sex: Female

DRUGS (1)
  1. OMNIPAQUE 70 [Suspect]
     Indication: HEPATIC NEOPLASM MALIGNANT
     Dosage: 100ML, SINGLE DOSE, INTRAVENOUS
     Route: 042
     Dates: start: 20110510, end: 20110510

REACTIONS (2)
  - NEOPLASM PROGRESSION [None]
  - MATERNAL DRUGS AFFECTING FOETUS [None]
